FAERS Safety Report 12548320 (Version 2)
Quarter: 2016Q3

REPORT INFORMATION
  Report Type: Spontaneous
  Country: CH (occurrence: CH)
  Receive Date: 20160712
  Receipt Date: 20160815
  Transmission Date: 20161109
  Serious: Yes (Hospitalization)
  Sender: FDA-Public Use
  Company Number: CH-BAYER-2016-131728

PATIENT
  Sex: Female

DRUGS (12)
  1. OPSUMIT [Concomitant]
     Active Substance: MACITENTAN
     Dosage: UNK
     Route: 048
  2. VI-DE 3 [Concomitant]
     Active Substance: CHOLECALCIFEROL
     Dosage: 4500 IU, UNK
     Route: 048
  3. MARCOUMAR [Concomitant]
     Active Substance: PHENPROCOUMON
     Route: 048
  4. SPIRICORT [Concomitant]
     Active Substance: PREDNISOLONE
     Dosage: UNK
     Route: 048
  5. ALENDRONATE SODIUM. [Concomitant]
     Active Substance: ALENDRONATE SODIUM
     Dosage: UNK
     Route: 048
  6. MAGNESIOCARD [Concomitant]
     Active Substance: MAGNESIUM ASPARTATE HYDROCHLORIDE
     Dosage: UNK
     Route: 048
  7. PANTOZOL [Concomitant]
     Active Substance: PANTOPRAZOLE SODIUM
     Dosage: UNK
     Route: 048
  8. TORASEMID [Concomitant]
     Active Substance: TORSEMIDE
     Dosage: UNK
     Route: 048
  9. IMUREK [Concomitant]
     Active Substance: AZATHIOPRINE
     Dosage: UNK
     Route: 048
  10. CALCIMAGON [Concomitant]
     Active Substance: CALCIUM
     Route: 048
  11. ADEMPAS [Suspect]
     Active Substance: RIOCIGUAT
     Indication: PULMONARY ARTERIAL HYPERTENSION
     Dosage: UNK
  12. LACRYCON [GLYCEROL,HYALURONATE SODIUM,POLYACRYLATE SODIUM] [Concomitant]

REACTIONS (2)
  - Circulatory collapse [Unknown]
  - White blood cell disorder [None]

NARRATIVE: CASE EVENT DATE: 20160627
